FAERS Safety Report 6741340-0 (Version None)
Quarter: 2010Q2

REPORT INFORMATION
  Report Type: 
  Country: None (occurrence: None)
  Receive Date: 20100526
  Receipt Date: 20100519
  Transmission Date: 20101027
  Serious: Yes (Other)
  Sender: FDA-Public Use
  Company Number: FR-PFIZER INC-2010064147

PATIENT
  Age: 69 Year
  Sex: Male

DRUGS (5)
  1. TAHOR [Suspect]
     Indication: INFARCTION
     Dosage: 40 MG, TWO TABLETS ONCE DAILY IN THE EVENING
  2. COVERSYL [Concomitant]
     Dosage: UNK
  3. CARDENSIEL [Concomitant]
     Dosage: UNK
  4. KARDEGIC [Concomitant]
     Dosage: UNK
  5. PLAVIX [Concomitant]
     Dosage: UNK

REACTIONS (1)
  - RAYNAUD'S PHENOMENON [None]
